FAERS Safety Report 19857484 (Version 1)
Quarter: 2021Q3

REPORT INFORMATION
  Report Type: Spontaneous
  Country: JP (occurrence: JP)
  Receive Date: 20210920
  Receipt Date: 20210920
  Transmission Date: 20211014
  Serious: Yes (Life-Threatening, Hospitalization, Other)
  Sender: FDA-Public Use
  Company Number: JP-LUPIN PHARMACEUTICALS INC.-2021-17634

PATIENT
  Age: 46 Year
  Sex: Female

DRUGS (4)
  1. TOPIRAMAT [Suspect]
     Active Substance: TOPIRAMATE
     Dosage: 100 MILLIGRAM (ACCIDENTALLY TOOK TWICE, 2 H APART)
     Route: 048
  2. LAMOTRIGINE. [Suspect]
     Active Substance: LAMOTRIGINE
     Dosage: 150 MILLIGRAM, QD
     Route: 048
  3. TOPIRAMAT [Suspect]
     Active Substance: TOPIRAMATE
     Indication: EPILEPSY
     Dosage: 50 MILLIGRAM, QD
     Route: 048
  4. LAMOTRIGINE. [Suspect]
     Active Substance: LAMOTRIGINE
     Dosage: 300 MILLIGRAM (ACCIDENTALLY TOOK TWICE, 2 H APART)
     Route: 048

REACTIONS (13)
  - Vertigo [Recovered/Resolved]
  - Vision blurred [Recovered/Resolved]
  - Somnolence [Recovered/Resolved]
  - Loss of consciousness [Recovered/Resolved]
  - Vomiting [Recovered/Resolved]
  - Electrocardiogram QT prolonged [Recovered/Resolved]
  - Seizure [Recovered/Resolved]
  - Accidental overdose [Unknown]
  - Electrocardiogram QRS complex prolonged [Recovered/Resolved]
  - Drug level increased [Recovered/Resolved]
  - Toxicity to various agents [Recovered/Resolved]
  - Wrong dose [Unknown]
  - Nausea [Recovered/Resolved]
